FAERS Safety Report 8996997 (Version 1)
Quarter: 2013Q1

REPORT INFORMATION
  Report Type: Report from Study
  Country: US (occurrence: US)
  Receive Date: 20130104
  Receipt Date: 20130104
  Transmission Date: 20140127
  Serious: Yes (Hospitalization, Other)
  Sender: FDA-Public Use
  Company Number: US-ASTRAZENECA-2012SE96208

PATIENT
  Age: 55 Year
  Sex: Male
  Weight: 82.6 kg

DRUGS (4)
  1. NEXIUM [Suspect]
     Indication: GASTROOESOPHAGEAL REFLUX DISEASE
     Route: 048
     Dates: start: 20080201
  2. ASPIRIN [Concomitant]
     Indication: CARDIAC DISORDER
     Dosage: DAILY
     Route: 048
  3. COLACE [Concomitant]
     Indication: LAXATIVE SUPPORTIVE CARE
     Dosage: DAILY
     Route: 048
  4. PLAVIX [Concomitant]
     Indication: CARDIAC DISORDER
     Dosage: DAILY
     Route: 048

REACTIONS (4)
  - Cardiac amyloidosis [Unknown]
  - Renal amyloidosis [Unknown]
  - Amyloidosis [Unknown]
  - Dyspnoea [Unknown]
